FAERS Safety Report 8585630-8 (Version None)
Quarter: 2012Q3

REPORT INFORMATION
  Report Type: 
  Country: None (occurrence: None)
  Receive Date: 20120810
  Receipt Date: 20120802
  Transmission Date: 20120928
  Serious: Yes (Other)
  Sender: FDA-Public Use
  Company Number: PHHY2012CA069051

PATIENT
  Sex: Female

DRUGS (2)
  1. FAMVIR [Suspect]
     Dosage: UNK UKN, UNK
     Route: 048
  2. VITAMIN D [Concomitant]
     Dosage: 1000 U, DAILY

REACTIONS (4)
  - BRONCHITIS [None]
  - VOMITING [None]
  - DRUG INTOLERANCE [None]
  - WHITE BLOOD CELL COUNT DECREASED [None]
